FAERS Safety Report 8239591-1 (Version None)
Quarter: 2012Q1

REPORT INFORMATION
  Report Type: 
  Country: None (occurrence: None)
  Receive Date: 20120328
  Receipt Date: 20120320
  Transmission Date: 20120608
  Serious: Yes (Hospitalization, Other)
  Sender: FDA-Public Use
  Company Number: US-JNJFOC-20120211437

PATIENT
  Sex: Male
  Weight: 100.25 kg

DRUGS (1)
  1. XARELTO [Suspect]
     Indication: ATRIAL FIBRILLATION
     Route: 048
     Dates: start: 20111208, end: 20120213

REACTIONS (5)
  - SUBDURAL HAEMATOMA [None]
  - PERIORBITAL HAEMATOMA [None]
  - BACK PAIN [None]
  - FALL [None]
  - LACERATION [None]
